FAERS Safety Report 9455741 (Version 1)
Quarter: 2013Q3

REPORT INFORMATION
  Report Type: Spontaneous
  Country: FR (occurrence: FR)
  Receive Date: 20130813
  Receipt Date: 20130813
  Transmission Date: 20140515
  Serious: No
  Sender: FDA-Public Use
  Company Number: FR-JNJFOC-20130706102

PATIENT
  Age: 76 Year
  Sex: Female

DRUGS (8)
  1. DUROGESIC [Suspect]
     Indication: CANCER PAIN
     Route: 062
     Dates: start: 20130515, end: 20130706
  2. DUROGESIC [Suspect]
     Indication: CANCER PAIN
     Route: 062
     Dates: start: 201307
  3. LYSANXIA [Concomitant]
     Indication: ANXIETY
     Route: 048
     Dates: start: 201304
  4. LYSANXIA [Concomitant]
     Indication: INSOMNIA
     Route: 048
     Dates: start: 201304
  5. TARCEVA [Concomitant]
     Indication: LUNG ADENOCARCINOMA METASTATIC
     Dosage: AT 10:00 AM
     Route: 048
     Dates: start: 20130601
  6. INEXIUM [Concomitant]
     Indication: ABDOMINAL PAIN UPPER
     Dosage: IN THE EVENING
     Route: 048
     Dates: start: 20130704
  7. DOMPERIDONE [Concomitant]
     Indication: NAUSEA
     Route: 048
     Dates: start: 20130704
  8. DOMPERIDONE [Concomitant]
     Indication: VOMITING
     Route: 048
     Dates: start: 20130704

REACTIONS (6)
  - Hyperhidrosis [Unknown]
  - Application site swelling [Unknown]
  - Pain [Not Recovered/Not Resolved]
  - Product quality issue [Unknown]
  - Incorrect route of drug administration [Unknown]
  - Application site reaction [Recovered/Resolved]
